FAERS Safety Report 11159648 (Version 1)
Quarter: 2015Q2

REPORT INFORMATION
  Report Type: Spontaneous
  Country: AU (occurrence: AU)
  Receive Date: 20150603
  Receipt Date: 20150603
  Transmission Date: 20150821
  Serious: Yes (Hospitalization)
  Sender: FDA-Public Use
  Company Number: PHHY2015AU064816

PATIENT
  Age: 30 Year
  Sex: Male

DRUGS (2)
  1. GENTAMICIN. [Suspect]
     Active Substance: GENTAMICIN
     Indication: CHORIORETINITIS
     Route: 057
  2. DEXAMETHASONE. [Suspect]
     Active Substance: DEXAMETHASONE
     Indication: CHORIORETINITIS
     Route: 057

REACTIONS (9)
  - Visual acuity reduced [Not Recovered/Not Resolved]
  - Retinitis [Unknown]
  - Herpes simplex [Recovered/Resolved with Sequelae]
  - Anterior chamber flare [Unknown]
  - Retinal detachment [Unknown]
  - Necrotising retinitis [Recovered/Resolved with Sequelae]
  - Haemorrhage [Unknown]
  - Diffuse vasculitis [Unknown]
  - Eye pain [Recovered/Resolved with Sequelae]
